FAERS Safety Report 19462705 (Version 1)
Quarter: 2021Q2

REPORT INFORMATION
  Report Type: Report from Study
  Country: CA (occurrence: CA)
  Receive Date: 20210625
  Receipt Date: 20210625
  Transmission Date: 20210717
  Serious: Yes (Other)
  Sender: FDA-Public Use
  Company Number: CA-REGENERON PHARMACEUTICALS, INC.-2021-61874

PATIENT

DRUGS (1)
  1. EYLEA [Suspect]
     Active Substance: AFLIBERCEPT
     Indication: NEOVASCULAR AGE-RELATED MACULAR DEGENERATION
     Dosage: UNK, RIGTH EYE, FIRST DOSE
     Dates: start: 20210616

REACTIONS (3)
  - Eye haemorrhage [Recovering/Resolving]
  - Vision blurred [Unknown]
  - Eye contusion [Unknown]

NARRATIVE: CASE EVENT DATE: 20210616
